FAERS Safety Report 20340135 (Version 1)
Quarter: 2022Q1

REPORT INFORMATION
  Report Type: Spontaneous
  Country: US (occurrence: US)
  Receive Date: 20220117
  Receipt Date: 20220117
  Transmission Date: 20220423
  Serious: No
  Sender: FDA-Public Use
  Company Number: US-009507513-2201USA003066

PATIENT
  Sex: Female
  Weight: 82.086 kg

DRUGS (2)
  1. KEYTRUDA [Suspect]
     Active Substance: PEMBROLIZUMAB
     Indication: Endometrial cancer
     Dosage: EVERY 3 WEEKS, STRENGTH: 100 MG/4 ML VIAL
  2. LENVATINIB MESYLATE [Suspect]
     Active Substance: LENVATINIB MESYLATE
     Indication: Endometrial cancer
     Dosage: 10 MG, DAILY; STRENGTH: 10 MG, 5 DAY PK-COMN
     Route: 048
     Dates: start: 202103, end: 20211125

REACTIONS (5)
  - Thyroid function test abnormal [Unknown]
  - Contusion [Unknown]
  - Blood blister [Unknown]
  - Limb discomfort [Unknown]
  - Pain in extremity [Unknown]

NARRATIVE: CASE EVENT DATE: 20210101
